FAERS Safety Report 6019403-7 (Version None)
Quarter: 2008Q4

REPORT INFORMATION
  Report Type: 
  Country: None (occurrence: None)
  Receive Date: 20081224
  Receipt Date: 20081217
  Transmission Date: 20090506
  Serious: Yes (Hospitalization)
  Sender: FDA-Public Use
  Company Number: US-BIOGENIDEC-2008BI034252

PATIENT
  Age: 20 Year
  Sex: Male

DRUGS (2)
  1. TYSABRI [Suspect]
     Indication: MULTIPLE SCLEROSIS
     Route: 042
     Dates: start: 20081120
  2. BETASERON [Concomitant]
     Indication: MULTIPLE SCLEROSIS

REACTIONS (2)
  - BALANCE DISORDER [None]
  - HYPOAESTHESIA [None]
